FAERS Safety Report 5732946-6 (Version None)
Quarter: 2008Q2

REPORT INFORMATION
  Report Type: 
  Country: None (occurrence: None)
  Receive Date: 20080509
  Receipt Date: 20080501
  Transmission Date: 20081010
  Serious: Yes (Hospitalization)
  Sender: FDA-Public Use
  Company Number: US-JNJFOC-20080401988

PATIENT
  Sex: Female
  Weight: 103.87 kg

DRUGS (3)
  1. REMICADE [Suspect]
     Indication: PSORIATIC ARTHROPATHY
     Route: 042
  2. METHOTREXATE [Concomitant]
     Dosage: 6 MONTHS PLUS
  3. ANALGESICS [Concomitant]
     Dosage: LESS THAN 3 MONTHS

REACTIONS (1)
  - GASTRIC DISORDER [None]
